FAERS Safety Report 4365333-6 (Version None)
Quarter: 2004Q2

REPORT INFORMATION
  Report Type: 
  Country: None (occurrence: None)
  Receive Date: 20040520
  Receipt Date: 20040427
  Transmission Date: 20050107
  Serious: Yes (Other)
  Sender: FDA-Public Use
  Company Number: 2004-04-2312

PATIENT

DRUGS (1)
  1. CLARITIN [Suspect]
     Dosage: ONE TABLET ORAL
     Route: 048
     Dates: start: 20040423

REACTIONS (1)
  - HALLUCINATION [None]
